FAERS Safety Report 8044580-6 (Version None)
Quarter: 2012Q1

REPORT INFORMATION
  Report Type: 
  Country: None (occurrence: None)
  Receive Date: 20120113
  Receipt Date: 20120113
  Transmission Date: 20120608
  Serious: Yes (Life-Threatening)
  Sender: FDA-Public Use
  Company Number: None

PATIENT
  Age: 63 Year
  Sex: Female
  Weight: 52.163 kg

DRUGS (3)
  1. CALCIUM SUPPLEMENT WITH VITAMIN D3 [Concomitant]
  2. LUMIGAN [Suspect]
     Indication: INTRAOCULAR PRESSURE INCREASED
     Dosage: ONE DROP IN EACH EYE
     Route: 047
     Dates: start: 20100707, end: 20111119
  3. MULTI-VITAMIN [Concomitant]

REACTIONS (9)
  - TINNITUS [None]
  - PHOTOPHOBIA [None]
  - HEADACHE [None]
  - EYE PAIN [None]
  - DRY EYE [None]
  - BLOOD PRESSURE INCREASED [None]
  - HYPOAESTHESIA [None]
  - SKIN DISCOLOURATION [None]
  - VISION BLURRED [None]
